FAERS Safety Report 5590751-8 (Version None)
Quarter: 2008Q1

REPORT INFORMATION
  Report Type: 
  Country: None (occurrence: None)
  Receive Date: 20080114
  Receipt Date: 20080107
  Transmission Date: 20080703
  Serious: Yes (Hospitalization)
  Sender: FDA-Public Use
  Company Number: DE-PFIZER INC-2007104825

PATIENT
  Age: 64 Year
  Sex: Female
  Weight: 69 kg

DRUGS (17)
  1. GENOTROPIN [Suspect]
     Indication: HYPOPITUITARISM
     Dosage: DAILY DOSE:.2MG-FREQ:DAILY
     Route: 058
     Dates: start: 20030211, end: 20050920
  2. OMNIFLORA [Concomitant]
     Indication: DIARRHOEA
     Dosage: TEXT:6 CAPS
     Dates: start: 20060227, end: 20061001
  3. LEVOTHYROXINE SODIUM [Concomitant]
     Indication: HYPOTHYROIDISM
     Dosage: TEXT:75 MCG
  4. XIPAMIDE [Concomitant]
     Indication: DIURETIC THERAPY
     Dosage: TEXT:20 MG
     Dates: start: 20060227
  5. SORTIS [Concomitant]
     Indication: HYPERLIPIDAEMIA
  6. METFORMIN HCL [Concomitant]
     Indication: DIABETES MELLITUS
  7. METOPROLOL SUCCINATE [Concomitant]
     Indication: HYPERTENSION
     Dosage: TEXT:23,75 MG
     Dates: start: 20060227
  8. NEXIUM [Concomitant]
     Indication: GASTRIC DISORDER
     Dosage: TEXT:40 MG
     Dates: start: 20060227
  9. NITROFURANTOIN [Concomitant]
     Indication: HYPERTENSION
     Dosage: TEXT:100 MG
     Dates: start: 20060227, end: 20061001
  10. MESALAMINE [Concomitant]
     Indication: CROHN'S DISEASE
     Dosage: TEXT:2 DROPS
  11. L-THYROXIN [Concomitant]
     Dosage: TEXT:50MCG
     Dates: start: 19990101, end: 20060226
  12. L-THYROXIN [Concomitant]
     Dosage: TEXT:75 MCG
  13. OLMETEC [Concomitant]
     Dates: start: 20040901, end: 20060226
  14. CLAVERSAL ^BYK^ [Concomitant]
     Dosage: TEXT:2 SUPPOSITORIES
     Route: 054
     Dates: start: 20060227, end: 20070601
  15. CLAVERSAL ^BYK^ [Concomitant]
     Route: 048
  16. HYDROCORTISON [Concomitant]
     Dosage: TEXT:15MG
  17. SIMVASTATIN [Concomitant]
     Dosage: TEXT:20MG

REACTIONS (1)
  - COLORECTAL CANCER [None]
